FAERS Safety Report 23762019 (Version 2)
Quarter: 2024Q3

REPORT INFORMATION
  Report Type: Spontaneous
  Country: JP (occurrence: JP)
  Receive Date: 20240419
  Receipt Date: 20240722
  Transmission Date: 20241016
  Serious: Yes (Hospitalization)
  Sender: ABBVIE
  Company Number: JP-ABBVIE-5720488

PATIENT
  Age: 29 Year
  Sex: Male
  Weight: 48 kg

DRUGS (5)
  1. RINVOQ [Suspect]
     Active Substance: UPADACITINIB
     Indication: Dermatitis atopic
     Dosage: 30 MILLIGRAM
     Route: 048
     Dates: start: 20230425, end: 20240203
  2. RINVOQ [Suspect]
     Active Substance: UPADACITINIB
     Indication: Dermatitis atopic
     Dosage: 30 MILLIGRAM
     Route: 048
     Dates: start: 20240222
  3. RINVOQ [Suspect]
     Active Substance: UPADACITINIB
     Indication: Dermatitis atopic
     Dosage: 30 MILLIGRAM
     Route: 048
     Dates: start: 20220704, end: 20230413
  4. ACYCLOVIR [Concomitant]
     Active Substance: ACYCLOVIR
     Indication: Impetigo
     Route: 041
  5. DESLORATADINE [Concomitant]
     Active Substance: DESLORATADINE
     Indication: Dermatitis atopic
     Dosage: 5 MILLIGRAM
     Route: 048
     Dates: start: 20230413

REACTIONS (16)
  - Impetigo [Recovered/Resolved]
  - White blood cell count increased [Unknown]
  - Pyrexia [Unknown]
  - C-reactive protein increased [Unknown]
  - Herpes zoster [Recovered/Resolved]
  - Wound [Unknown]
  - Skin disorder [Unknown]
  - Eye discharge [Unknown]
  - Rash [Recovered/Resolved]
  - Skin erosion [Unknown]
  - Staphylococcal infection [Recovered/Resolved]
  - Beta haemolytic streptococcal infection [Recovered/Resolved]
  - Blister [Unknown]
  - Erythema [Unknown]
  - Purulence [Unknown]
  - Scab [Unknown]

NARRATIVE: CASE EVENT DATE: 20230412
